FAERS Safety Report 15852080 (Version 1)
Quarter: 2019Q1

REPORT INFORMATION
  Report Type: Spontaneous
  Country: ES (occurrence: ES)
  Receive Date: 20190122
  Receipt Date: 20190122
  Transmission Date: 20190417
  Serious: Yes (Hospitalization)
  Sender: FDA-Public Use
  Company Number: ES-BAYER-2019-009925

PATIENT
  Age: 43 Year
  Sex: Female

DRUGS (2)
  1. MIRENA [Suspect]
     Active Substance: LEVONORGESTREL
     Indication: PLANNING TO BECOME PREGNANT
     Dosage: 20 MCG/24HR, CONT
     Route: 015
  2. MIRENA [Suspect]
     Active Substance: LEVONORGESTREL
     Indication: PLANNING TO BECOME PREGNANT
     Route: 015

REACTIONS (4)
  - Pregnancy with contraceptive device [Recovering/Resolving]
  - Abortion late [Recovering/Resolving]
  - Drug ineffective [Recovered/Resolved]
  - Amniorrhexis [Recovering/Resolving]

NARRATIVE: CASE EVENT DATE: 20181010
